FAERS Safety Report 9105284 (Version 1)
Quarter: 2013Q1

REPORT INFORMATION
  Report Type: Spontaneous
  Country: US (occurrence: US)
  Receive Date: 20130220
  Receipt Date: 20130220
  Transmission Date: 20140127
  Serious: Yes (Other)
  Sender: FDA-Public Use
  Company Number: US-BAYER-2013-019807

PATIENT
  Age: 19 Month
  Sex: Female

DRUGS (8)
  1. OXYMETAZOLINE HYDROCHLORIDE [Suspect]
     Dosage: 2 SPRAYS IN RIGHT NOSTRIL
     Route: 045
  2. PHENYLEPHRINE HYDROCHLORIDE [Interacting]
     Dosage: 1 DROP FOR EACH EYE
     Route: 047
  3. DIPHENHYDRAMINE HYDROCHLORIDE [Interacting]
     Dosage: 10 MG, UNK
     Route: 042
  4. ALBUTEROL [Interacting]
     Dosage: 180 ?G, UNK
     Route: 055
  5. HYDROCORTISONE [Concomitant]
     Dosage: 10 MG, UNK
     Route: 042
  6. MELPHALAN [Concomitant]
     Indication: RETINOBLASTOMA
  7. ASPIRIN [Concomitant]
     Indication: THROMBOSIS PROPHYLAXIS
     Dosage: 10 MG/KG, UNK
  8. HEPARIN [Concomitant]
     Indication: PROPHYLAXIS
     Dosage: 75 UNITS/ KG

REACTIONS (4)
  - Cerebral vasoconstriction [Recovered/Resolved]
  - Hypertension [Recovered/Resolved]
  - Drug interaction [None]
  - Off label use [None]
